FAERS Safety Report 8837427 (Version 2)
Quarter: 2012Q4

REPORT INFORMATION
  Report Type: 
  Country: IN (occurrence: IN)
  Receive Date: 20121012
  Receipt Date: 20121218
  Transmission Date: 20130627
  Serious: Yes (Death, Hospitalization)
  Sender: FDA-Public Use
  Company Number: PHHY2012IN090096

PATIENT
  Age: 47 Year
  Sex: Female

DRUGS (2)
  1. ACLASTA [Suspect]
     Indication: OSTEOPOROSIS
     Dosage: 5mg/100ml/year
     Route: 042
     Dates: start: 20111014
  2. CALCIUM [Concomitant]
     Dosage: UNK UKN, UNK

REACTIONS (4)
  - Death [Fatal]
  - Upper limb fracture [Not Recovered/Not Resolved]
  - Pain [Not Recovered/Not Resolved]
  - Abasia [Not Recovered/Not Resolved]
